FAERS Safety Report 11403961 (Version 1)
Quarter: 2015Q3

REPORT INFORMATION
  Report Type: Spontaneous
  Country: US (occurrence: US)
  Receive Date: 20150821
  Receipt Date: 20150821
  Transmission Date: 20151125
  Serious: No
  Sender: FDA-Public Use
  Company Number: US-TEVA-535899USA

PATIENT
  Sex: Female

DRUGS (1)
  1. CLONIDINE. [Suspect]
     Active Substance: CLONIDINE
     Indication: HYPERTENSION
     Dosage: 0.1MG AND 0.2 MG AND 0.3 PATCHES
     Route: 062
     Dates: start: 201408

REACTIONS (2)
  - Hypertension [Unknown]
  - Drug ineffective [Unknown]
